FAERS Safety Report 17264328 (Version 1)
Quarter: 2020Q1

REPORT INFORMATION
  Report Type: Spontaneous
  Country: US (occurrence: US)
  Receive Date: 20200113
  Receipt Date: 20200113
  Transmission Date: 20200409
  Serious: Yes (Death, Other)
  Sender: FDA-Public Use
  Company Number: US-AMGEN-USASP2020002774

PATIENT

DRUGS (10)
  1. NILOTINIB [Concomitant]
     Active Substance: NILOTINIB
     Indication: CHRONIC MYELOID LEUKAEMIA
  2. BLINATUMOMAB [Suspect]
     Active Substance: BLINATUMOMAB
     Indication: ACUTE LYMPHOCYTIC LEUKAEMIA
     Dosage: UNK
     Route: 065
  3. DASATINIB. [Concomitant]
     Active Substance: DASATINIB
     Indication: CHRONIC MYELOID LEUKAEMIA
  4. BLINATUMOMAB [Suspect]
     Active Substance: BLINATUMOMAB
     Indication: CHRONIC MYELOID LEUKAEMIA
  5. BOSUTINIB [Concomitant]
     Active Substance: BOSUTINIB
     Indication: ACUTE LYMPHOCYTIC LEUKAEMIA
  6. PONATINIB [Concomitant]
     Active Substance: PONATINIB
     Indication: ACUTE LYMPHOCYTIC LEUKAEMIA
  7. DASATINIB. [Concomitant]
     Active Substance: DASATINIB
     Indication: ACUTE LYMPHOCYTIC LEUKAEMIA
  8. NILOTINIB [Concomitant]
     Active Substance: NILOTINIB
     Indication: ACUTE LYMPHOCYTIC LEUKAEMIA
  9. BOSUTINIB [Concomitant]
     Active Substance: BOSUTINIB
     Indication: CHRONIC MYELOID LEUKAEMIA
  10. PONATINIB [Concomitant]
     Active Substance: PONATINIB
     Indication: CHRONIC MYELOID LEUKAEMIA

REACTIONS (7)
  - Deep vein thrombosis [Unknown]
  - Transaminases increased [Unknown]
  - Acute lymphocytic leukaemia recurrent [Unknown]
  - Cytokine release syndrome [Unknown]
  - Gene mutation [Unknown]
  - Death [Fatal]
  - Neurotoxicity [Unknown]
